FAERS Safety Report 8584887-7 (Version None)
Quarter: 2012Q3

REPORT INFORMATION
  Report Type: 
  Country: None (occurrence: None)
  Receive Date: 20120810
  Receipt Date: 20120802
  Transmission Date: 20120928
  Serious: Yes (Hospitalization)
  Sender: FDA-Public Use
  Company Number: US-AMGEN-USASP2012048849

PATIENT
  Age: 61 Year
  Sex: Female
  Weight: 70.295 kg

DRUGS (2)
  1. METFORMIN HYDROCHLORIDE [Concomitant]
     Indication: DIABETES MELLITUS
     Dosage: 500 MG, QD
     Dates: start: 20020101
  2. PROCRIT [Suspect]
     Indication: ANAEMIA OF CHRONIC DISEASE
     Dosage: 40000 IU, QWK
     Route: 058
     Dates: start: 20091201, end: 20100101

REACTIONS (6)
  - ANAEMIA [None]
  - ASTHENIA [None]
  - GAIT DISTURBANCE [None]
  - PALPITATIONS [None]
  - FATIGUE [None]
  - VENOUS THROMBOSIS LIMB [None]
